FAERS Safety Report 23746758 (Version 1)
Quarter: 2024Q2

REPORT INFORMATION
  Report Type: Report from Study
  Country: GB (occurrence: GB)
  Receive Date: 20240416
  Receipt Date: 20240416
  Transmission Date: 20240716
  Serious: Yes (Other)
  Sender: FDA-Public Use
  Company Number: GB-TEVA-VS-3183008

PATIENT
  Sex: Female

DRUGS (1)
  1. AJOVY [Suspect]
     Active Substance: FREMANEZUMAB-VFRM
     Indication: Migraine
     Route: 058

REACTIONS (6)
  - Loss of consciousness [Unknown]
  - Memory impairment [Unknown]
  - Illness [Unknown]
  - Mental disorder [Unknown]
  - Dizziness [Unknown]
  - Product dose omission in error [Unknown]
